FAERS Safety Report 24447590 (Version 1)
Quarter: 2024Q4

REPORT INFORMATION
  Report Type: Spontaneous
  Country: US (occurrence: US)
  Receive Date: 20241016
  Receipt Date: 20241016
  Transmission Date: 20250115
  Serious: No
  Sender: SANOFI AVENTIS
  Company Number: US-SANOFI-02246281

PATIENT
  Age: 82 Year
  Sex: Male

DRUGS (1)
  1. ADMELOG [Suspect]
     Active Substance: INSULIN LISPRO
     Indication: Type 2 diabetes mellitus
     Dosage: VARIES AC AND DRUG TREATMENT DURATION:UTR18 UNITS IN TOTAL

REACTIONS (1)
  - Injection site pain [Unknown]
